FAERS Safety Report 4893087-3 (Version None)
Quarter: 2005Q4

REPORT INFORMATION
  Report Type: 
  Country: None (occurrence: None)
  Receive Date: 20051220
  Receipt Date: 20050310
  Transmission Date: 20060501
  Serious: Yes (Other)
  Sender: FDA-Public Use
  Company Number: PHEH2005US00478

PATIENT
  Age: 64 Year
  Sex: Female

DRUGS (8)
  1. AREDIA [Suspect]
     Indication: MULTIPLE MYELOMA
  2. DEXMETHSONE (DEXAMETHASONE) [Concomitant]
  3. THALIDOMIDE (THALIDOMIDE) [Concomitant]
  4. INSULIN [Concomitant]
  5. ENALAPRIL MALEATE [Concomitant]
  6. VELCADE [Concomitant]
  7. PENICILLIN [Concomitant]
  8. CHLORHEXIDINE (CHLORHEXINE) RINCE MOUTH [Concomitant]

REACTIONS (6)
  - EAR PAIN [None]
  - NECK PAIN [None]
  - PAIN IN JAW [None]
  - RENAL FAILURE [None]
  - TOOTH DISORDER [None]
  - TOOTHACHE [None]
